FAERS Safety Report 12141060 (Version 1)
Quarter: 2016Q1

REPORT INFORMATION
  Report Type: Spontaneous
  Country: US (occurrence: US)
  Receive Date: 20160303
  Receipt Date: 20160303
  Transmission Date: 20160526
  Serious: No
  Sender: FDA-Public Use
  Company Number: US-PFIZER INC-2016064977

PATIENT
  Age: 70 Year
  Sex: Male
  Weight: 85.28 kg

DRUGS (2)
  1. TIKOSYN [Suspect]
     Active Substance: DOFETILIDE
     Indication: ATRIAL FIBRILLATION
     Dosage: 500 UG, 2X/DAY (EVERY 12 HRS)
     Dates: start: 20151130
  2. KETOCONAZOLE TEVA [Suspect]
     Active Substance: KETOCONAZOLE
     Indication: TINEA PEDIS
     Dosage: UNK (30 GRAMS OF 2 PERCENT/SOMETIMES ONCE AND SOMETIMES TWICE)
     Route: 061
     Dates: start: 20151208, end: 20151223

REACTIONS (3)
  - Blister [Recovered/Resolved]
  - Skin discolouration [Not Recovered/Not Resolved]
  - Contraindicated drug administered [Recovered/Resolved]

NARRATIVE: CASE EVENT DATE: 201512
